APPROVED DRUG PRODUCT: FRAGMIN
Active Ingredient: DALTEPARIN SODIUM
Strength: 10,000IU/ML (10,000IU/ML)
Dosage Form/Route: INJECTABLE;SUBCUTANEOUS
Application: N020287 | Product #004
Applicant: PFIZER INC
Approved: Jan 30, 1998 | RLD: Yes | RS: No | Type: RX